FAERS Safety Report 4507660-5 (Version None)
Quarter: 2004Q4

REPORT INFORMATION
  Report Type: 
  Country: None (occurrence: None)
  Receive Date: 20040928
  Receipt Date: 20040618
  Transmission Date: 20050328
  Serious: Yes (Hospitalization)
  Sender: FDA-Public Use
  Company Number: 04P-163-0264230-00

PATIENT
  Age: 65 Year
  Sex: Female
  Weight: 53.0709 kg

DRUGS (6)
  1. HUMIRA [Suspect]
     Indication: RHEUMATOID ARTHRITIS
     Dosage: 40 MG, 1 IN 2 WK, SUBCUTANEOUS
     Route: 058
     Dates: start: 20040519
  2. LEVOSALBUTAMOL [Concomitant]
  3. LEVOTHYROXINE SODIUM [Concomitant]
  4. CETIRIZINE HCL [Concomitant]
  5. FLUTICASONE PROPIONATE [Concomitant]
  6. DETROL LA [Concomitant]

REACTIONS (3)
  - ASTHMA [None]
  - INJECTION SITE PAIN [None]
  - SINUSITIS [None]
